FAERS Safety Report 8227112-9 (Version None)
Quarter: 2012Q1

REPORT INFORMATION
  Report Type: 
  Country: None (occurrence: None)
  Receive Date: 20120322
  Receipt Date: 20120308
  Transmission Date: 20120608
  Serious: Yes (Hospitalization)
  Sender: FDA-Public Use
  Company Number: US-BAYER-2012-003376

PATIENT
  Age: 34 Year
  Sex: Female
  Weight: 68.027 kg

DRUGS (3)
  1. DROSPIRENONE AND ETHINYL ESTRADIOL [Suspect]
     Indication: CONTRACEPTION
     Dosage: UNK
     Route: 048
     Dates: start: 20080101, end: 20100101
  2. YASMIN [Suspect]
     Indication: CONTRACEPTION
     Dosage: UNK
     Route: 048
     Dates: start: 20030101, end: 20040101
  3. YAZ [Suspect]
     Indication: CONTRACEPTION
     Route: 048

REACTIONS (6)
  - EMOTIONAL DISTRESS [None]
  - ABDOMINAL PAIN [None]
  - ANXIETY [None]
  - PAIN [None]
  - PSYCHOLOGICAL TRAUMA [None]
  - FEAR [None]
